FAERS Safety Report 19424843 (Version 1)
Quarter: 2021Q2

REPORT INFORMATION
  Report Type: Spontaneous
  Country: GR (occurrence: GR)
  Receive Date: 20210617
  Receipt Date: 20210617
  Transmission Date: 20210717
  Serious: Yes (Death)
  Sender: FDA-Public Use
  Company Number: GR-SUN PHARMACEUTICAL INDUSTRIES LTD-2021R1-300607

PATIENT
  Age: 56 Year
  Sex: Female

DRUGS (3)
  1. DEXAMETHASONE. [Suspect]
     Active Substance: DEXAMETHASONE
     Indication: CHRONIC LYMPHOCYTIC LEUKAEMIA
     Dosage: 40 MILLIGRAM, QD
     Route: 065
  2. METHOTREXATE. [Suspect]
     Active Substance: METHOTREXATE
     Indication: CHRONIC LYMPHOCYTIC LEUKAEMIA
     Dosage: 15 MG , UNK
     Route: 065
  3. DEXAMETHASONE. [Suspect]
     Active Substance: DEXAMETHASONE
     Dosage: 8MG , UNK
     Route: 037

REACTIONS (1)
  - Drug ineffective [Fatal]
